FAERS Safety Report 10147055 (Version 2)
Quarter: 2014Q2

REPORT INFORMATION
  Report Type: Spontaneous
  Country: US (occurrence: US)
  Receive Date: 20140501
  Receipt Date: 20140522
  Transmission Date: 20141212
  Serious: No
  Sender: FDA-Public Use
  Company Number: US-PFIZER INC-2014116163

PATIENT
  Age: 75 Year
  Sex: Male
  Weight: 79.37 kg

DRUGS (9)
  1. SUTENT [Suspect]
     Indication: RENAL CANCER
     Dosage: UNK
     Dates: start: 2013, end: 20140502
  2. PANTOPRAZOLE SODIUM [Concomitant]
     Dosage: 40 MG, DAILY
  3. BYSTOLIC [Concomitant]
     Indication: HYPERTENSION
     Dosage: 10 MG, DAILY
  4. EDARBYCLOR [Concomitant]
     Dosage: AZILSARTAN MEDOXOMIL 40MG/CHLORTHALIDONE 12.5 MG, DAILY
  5. ALLOPURINOL [Concomitant]
     Indication: GOUT
     Dosage: 300 MG, DAILY
  6. FUROSEMIDE [Concomitant]
     Dosage: 20 MG, DAILY
  7. BRIMONIDINE [Concomitant]
     Dosage: UNK, 2X/DAY
  8. DORZOLAMIDE [Concomitant]
     Dosage: UNK, 2X/DAY
  9. ASPIRIN [Concomitant]
     Dosage: 81 MG, DAILY

REACTIONS (6)
  - Skin sensitisation [Unknown]
  - Rash [Unknown]
  - Rash generalised [Unknown]
  - Skin exfoliation [Unknown]
  - Skin exfoliation [Unknown]
  - Nasal discomfort [Unknown]
